FAERS Safety Report 5921475-2 (Version None)
Quarter: 2008Q4

REPORT INFORMATION
  Report Type: 
  Country: None (occurrence: None)
  Receive Date: 20081016
  Receipt Date: 20081016
  Transmission Date: 20090506
  Serious: No
  Sender: FDA-Public Use
  Company Number: None

PATIENT
  Age: 81 Year
  Sex: Female
  Weight: 54.8852 kg

DRUGS (1)
  1. ALLOPURINOL 100MG TAB [Suspect]
     Indication: GOUT
     Dosage: 1 TABLET DAILY MOUTH
     Route: 048
     Dates: start: 20080802, end: 20080831

REACTIONS (11)
  - ABASIA [None]
  - BLISTER [None]
  - BURNING SENSATION [None]
  - IMPAIRED SELF-CARE [None]
  - MOVEMENT DISORDER [None]
  - OEDEMA PERIPHERAL [None]
  - OROPHARYNGEAL BLISTERING [None]
  - PAIN OF SKIN [None]
  - RASH [None]
  - SKIN DISCOLOURATION [None]
  - SKIN EXFOLIATION [None]
